FAERS Safety Report 5010502-5 (Version None)
Quarter: 2006Q2

REPORT INFORMATION
  Report Type: 
  Country: None (occurrence: None)
  Receive Date: 20060525
  Receipt Date: 20050518
  Transmission Date: 20061013
  Serious: No
  Sender: FDA-Public Use
  Company Number: US-GLAXOSMITHKLINE-A0559155A

PATIENT
  Sex: Female

DRUGS (7)
  1. BACTROBAN [Suspect]
     Route: 045
     Dates: start: 20010101
  2. LEVBID [Concomitant]
  3. SYNTHROID [Concomitant]
  4. OVCON-35 [Concomitant]
     Indication: CONTRACEPTION
  5. MULTIVITAMIN [Concomitant]
  6. FEOSOL [Concomitant]
  7. CALCIUM GLUCONATE [Concomitant]

REACTIONS (2)
  - PHARMACEUTICAL PRODUCT COMPLAINT [None]
  - THERAPEUTIC RESPONSE UNEXPECTED [None]
